FAERS Safety Report 16076177 (Version 2)
Quarter: 2023Q1

REPORT INFORMATION
  Report Type: Spontaneous
  Country: KE (occurrence: KE)
  Receive Date: 20190315
  Receipt Date: 20230326
  Transmission Date: 20230417
  Serious: Yes (Other)
  Sender: FDA-Public Use
  Company Number: KE-009507513-1903KEN004235

PATIENT
  Age: 67 Year
  Sex: Male

DRUGS (5)
  1. RALTEGRAVIR POTASSIUM [Suspect]
     Active Substance: RALTEGRAVIR POTASSIUM
     Indication: HIV infection CDC category A
     Dosage: UNK
     Route: 048
     Dates: start: 2009, end: 2014
  2. ABACAVIR [Concomitant]
     Active Substance: ABACAVIR
     Indication: HIV infection CDC category A
     Dosage: UNK
     Dates: start: 2011, end: 2014
  3. ABACAVIR [Concomitant]
     Active Substance: ABACAVIR
     Dosage: UNK
     Dates: start: 2014, end: 201709
  4. LAMIVUDINE [Concomitant]
     Active Substance: LAMIVUDINE
     Indication: HIV infection CDC category A
     Dosage: UNK
     Dates: start: 2011
  5. LAMIVUDINE [Concomitant]
     Active Substance: LAMIVUDINE
     Dosage: UNK
     Dates: start: 199902, end: 200510

REACTIONS (3)
  - Pathogen resistance [Unknown]
  - Virologic failure [Unknown]
  - Viral mutation identified [Unknown]

NARRATIVE: CASE EVENT DATE: 20140101
